FAERS Safety Report 26103697 (Version 2)
Quarter: 2025Q4

REPORT INFORMATION
  Report Type: Spontaneous
  Country: US (occurrence: US)
  Receive Date: 20251129
  Receipt Date: 20251215
  Transmission Date: 20260118
  Serious: No
  Sender: MICRO LABS LIMITED
  Company Number: US-MICRO LABS LIMITED-ML2025-06168

PATIENT
  Age: 77 Year
  Sex: Female
  Weight: 65 kg

DRUGS (4)
  1. DORZOLAMIDE HYDROCHLORIDE [Suspect]
     Active Substance: DORZOLAMIDE HYDROCHLORIDE
     Indication: Glaucoma
     Route: 047
  2. Valsartan 80 milligram tablets [Concomitant]
     Indication: Hypertension
  3. Montelukast 10 milligram tablets [Concomitant]
     Indication: Product used for unknown indication
  4. Atorvastatin 10 milligram tablets [Concomitant]
     Indication: Product used for unknown indication

REACTIONS (3)
  - Inadequate aseptic technique in use of product [Unknown]
  - Product container issue [Unknown]
  - No adverse event [Unknown]

NARRATIVE: CASE EVENT DATE: 20250101
